FAERS Safety Report 20872208 (Version 2)
Quarter: 2022Q3

REPORT INFORMATION
  Report Type: Spontaneous
  Country: US (occurrence: US)
  Receive Date: 20220525
  Receipt Date: 20220817
  Transmission Date: 20221027
  Serious: No
  Sender: FDA-Public Use
  Company Number: US-BRISTOL-MYERS SQUIBB COMPANY-2022-030491

PATIENT
  Age: 67 Year
  Sex: Male

DRUGS (2)
  1. POMALYST [Suspect]
     Active Substance: POMALIDOMIDE
     Indication: Antibiotic therapy
     Route: 048
     Dates: start: 20210518
  2. POMALYST [Suspect]
     Active Substance: POMALIDOMIDE
     Dosage: TAKE 1 CAPSULE BY MOUTH DAILY FOR 21 DAYS ON AN EMPTY STOMACH FOLLOWED BY 7 DAY REST PERIOD
     Route: 048
     Dates: start: 20200501

REACTIONS (2)
  - Pain [Recovered/Resolved]
  - Off label use [Unknown]
